FAERS Safety Report 25879157 (Version 1)
Quarter: 2025Q4

REPORT INFORMATION
  Report Type: Spontaneous
  Country: US (occurrence: US)
  Receive Date: 20251003
  Receipt Date: 20251003
  Transmission Date: 20260118
  Serious: Yes (Other)
  Sender: AMGEN
  Company Number: US-AMGEN-USASP2025192357

PATIENT

DRUGS (9)
  1. XGEVA [Suspect]
     Active Substance: DENOSUMAB
     Indication: Metastases to bone
     Dosage: UNK
     Route: 065
  2. PEGFILGRASTIM [Suspect]
     Active Substance: PEGFILGRASTIM
     Indication: Prophylaxis
     Dosage: ADMINISTERED ON DAY 9
     Route: 065
  3. CARBOPLATIN [Suspect]
     Active Substance: CARBOPLATIN
     Indication: Breast cancer
     Dosage: AUC 2 WAS THE STARTING DOSE AT EACH DOSE LEVE
     Route: 040
  4. CARBOPLATIN [Suspect]
     Active Substance: CARBOPLATIN
     Indication: Ovarian cancer recurrent
  5. GEMCITABINE [Suspect]
     Active Substance: GEMCITABINE
     Indication: Breast cancer
     Dosage: 1000 MILLIGRAM/SQ. METER
     Route: 040
  6. GEMCITABINE [Suspect]
     Active Substance: GEMCITABINE
     Indication: Ovarian cancer recurrent
     Dosage: 800 MILLIGRAM/SQ. METER
     Route: 040
  7. GEMCITABINE [Suspect]
     Active Substance: GEMCITABINE
     Dosage: 600 MILLIGRAM/SQ. METER
     Route: 040
  8. MIFEPRISTONE [Suspect]
     Active Substance: MIFEPRISTONE
     Indication: Breast cancer
     Dosage: 300 MILLIGRAM, QD WITH FOOD , THE DAY PRIOR TO (D-1) AND THE DAY OF CHEMOTHERAPY INFUSION (DI)
     Route: 048
  9. MIFEPRISTONE [Suspect]
     Active Substance: MIFEPRISTONE
     Indication: Ovarian cancer recurrent

REACTIONS (15)
  - Ovarian cancer metastatic [Unknown]
  - Breast cancer metastatic [Unknown]
  - Neutropenia [Unknown]
  - Thrombocytopenia [Unknown]
  - Peripheral sensory neuropathy [Unknown]
  - Fatigue [Unknown]
  - Nausea [Unknown]
  - Vomiting [Unknown]
  - Constipation [Unknown]
  - Decreased appetite [Unknown]
  - Rash [Unknown]
  - Anaemia [Unknown]
  - Alopecia [Unknown]
  - Therapy partial responder [Unknown]
  - Drug ineffective [Unknown]
